FAERS Safety Report 13072654 (Version 2)
Quarter: 2018Q1

REPORT INFORMATION
  Report Type: Spontaneous
  Country: US (occurrence: US)
  Receive Date: 20161229
  Receipt Date: 20180115
  Transmission Date: 20180508
  Serious: Yes (Other)
  Sender: FDA-Public Use
  Company Number: US-SA-2016SA191841

PATIENT
  Sex: Female
  Weight: 81.64 kg

DRUGS (4)
  1. TAXOTERE [Suspect]
     Active Substance: DOCETAXEL
     Indication: BREAST CANCER STAGE I
     Route: 065
     Dates: start: 20131014, end: 20131014
  2. TAXOTERE [Suspect]
     Active Substance: DOCETAXEL
     Indication: BREAST CANCER STAGE I
     Route: 065
     Dates: start: 20140127, end: 20140127
  3. NORVASC [Concomitant]
     Active Substance: AMLODIPINE BESYLATE
     Route: 065
     Dates: start: 2001
  4. BENICAR [Concomitant]
     Active Substance: OLMESARTAN MEDOXOMIL
     Route: 065
     Dates: start: 2001

REACTIONS (6)
  - Emotional distress [Unknown]
  - Hair texture abnormal [Recovering/Resolving]
  - Alopecia [Recovering/Resolving]
  - Injury [Unknown]
  - Anxiety [Unknown]
  - Hair colour changes [Recovering/Resolving]

NARRATIVE: CASE EVENT DATE: 2013
